FAERS Safety Report 4891818-X (Version None)
Quarter: 2006Q1

REPORT INFORMATION
  Report Type: 
  Country: None (occurrence: None)
  Receive Date: 20060123
  Receipt Date: 20060110
  Transmission Date: 20060701
  Serious: Yes (Other)
  Sender: FDA-Public Use
  Company Number: DE200601000749

PATIENT
  Age: 46 Year
  Sex: Male

DRUGS (3)
  1. ZYPREXA [Suspect]
     Indication: SCHIZOAFFECTIVE DISORDER
     Dosage: 205 MG DAILY (1/D), ORAL
     Route: 048
     Dates: start: 20000101
  2. FLUPHENAZINE [Concomitant]
  3. DOXEPIN HCL [Concomitant]

REACTIONS (2)
  - CARDIOMEGALY [None]
  - INTERSTITIAL LUNG DISEASE [None]
